FAERS Safety Report 7112237-1 (Version None)
Quarter: 2010Q4

REPORT INFORMATION
  Report Type: 
  Country: None (occurrence: None)
  Receive Date: 20101119
  Receipt Date: 20100412
  Transmission Date: 20110411
  Serious: No
  Sender: FDA-Public Use
  Company Number: A0854897A

PATIENT
  Sex: Male

DRUGS (1)
  1. AVODART [Suspect]
     Route: 065
     Dates: start: 20091011, end: 20100216

REACTIONS (2)
  - BREAST PAIN [None]
  - BREAST SWELLING [None]
